FAERS Safety Report 6642458-3 (Version None)
Quarter: 2010Q1

REPORT INFORMATION
  Report Type: 
  Country: None (occurrence: None)
  Receive Date: 20100319
  Receipt Date: 20100309
  Transmission Date: 20100710
  Serious: Yes (Life-Threatening, Hospitalization, Disabling)
  Sender: FDA-Public Use
  Company Number: B0638373A

PATIENT
  Age: 72 Year
  Sex: Female
  Weight: 58.5 kg

DRUGS (4)
  1. NICOTINE [Suspect]
     Route: 048
     Dates: start: 20020430
  2. WARFARIN SODIUM [Concomitant]
     Dates: start: 20070709
  3. BIMATOPROST [Concomitant]
     Dates: start: 20070914
  4. VAGIFEM [Concomitant]
     Dates: start: 20080707

REACTIONS (1)
  - LIP AND/OR ORAL CAVITY CANCER [None]
